FAERS Safety Report 5457953-2 (Version None)
Quarter: 2007Q3

REPORT INFORMATION
  Report Type: 
  Country: None (occurrence: None)
  Receive Date: 20070917
  Receipt Date: 20070907
  Transmission Date: 20080115
  Serious: Yes (Hospitalization)
  Sender: FDA-Public Use
  Company Number: 2007SP018061

PATIENT
  Age: 46 Year
  Sex: Female

DRUGS (4)
  1. PEG-INTRON [Suspect]
     Indication: HEPATITIS C
     Dosage: ; SC,; SC
     Route: 058
     Dates: start: 20070629, end: 20070715
  2. PEG-INTRON [Suspect]
     Indication: HEPATITIS C
     Dosage: ; SC,; SC
     Route: 058
     Dates: start: 20070907
  3. RIBAVIRIN [Suspect]
     Indication: HEPATITIS C
     Dosage: ; PO,; PO
     Route: 048
     Dates: start: 20070629, end: 20070715
  4. RIBAVIRIN [Suspect]
     Indication: HEPATITIS C
     Dosage: ; PO,; PO
     Route: 048
     Dates: start: 20070907

REACTIONS (12)
  - ANXIETY [None]
  - ASTHMA [None]
  - BRONCHITIS [None]
  - DISTURBANCE IN ATTENTION [None]
  - DYSPNOEA [None]
  - HYPOTENSION [None]
  - INJECTION SITE HAEMORRHAGE [None]
  - MENTAL IMPAIRMENT [None]
  - NERVOUSNESS [None]
  - PNEUMONIA [None]
  - THYROID DISORDER [None]
  - TREMOR [None]
